FAERS Safety Report 9632104 (Version 1)
Quarter: 2013Q4

REPORT INFORMATION
  Report Type: Spontaneous
  Country: DE (occurrence: DE)
  Receive Date: 20131018
  Receipt Date: 20131018
  Transmission Date: 20140711
  Serious: Yes (Congenital Anomaly)
  Sender: FDA-Public Use
  Company Number: DE-TEVA-437433GER

PATIENT
  Age: 1 Day
  Sex: Female
  Weight: 1.72 kg

DRUGS (4)
  1. LAMOTRIGIN [Suspect]
     Route: 064
  2. PAROXETIN [Suspect]
     Route: 064
  3. CHLORPROTHIXEN [Concomitant]
     Route: 064
  4. FOLIO FORTE [Concomitant]
     Route: 064

REACTIONS (3)
  - Ventricular septal defect [Unknown]
  - Premature baby [Unknown]
  - Atrial septal defect [Unknown]
